FAERS Safety Report 9759547 (Version 1)
Quarter: 2013Q4

REPORT INFORMATION
  Report Type: Spontaneous
  Country: US (occurrence: US)
  Receive Date: 20131216
  Receipt Date: 20131216
  Transmission Date: 20140711
  Serious: No
  Sender: FDA-Public Use
  Company Number: US-GILEAD-2010-0028036

PATIENT
  Age: 60 Year
  Sex: Female

DRUGS (10)
  1. LETAIRIS [Suspect]
     Indication: PULMONARY ARTERIAL HYPERTENSION
     Route: 048
     Dates: start: 20100216
  2. VENTAVIS [Suspect]
  3. REVATIO [Concomitant]
  4. LASIX [Concomitant]
  5. INDAPAMIDE [Concomitant]
  6. DIOVAN [Concomitant]
  7. COREG [Concomitant]
  8. PRILOSEC [Concomitant]
  9. PREMARIN [Concomitant]
  10. K-DUR [Concomitant]

REACTIONS (2)
  - Oedema peripheral [Not Recovered/Not Resolved]
  - Flushing [Not Recovered/Not Resolved]
